FAERS Safety Report 17032803 (Version 1)
Quarter: 2019Q4

REPORT INFORMATION
  Report Type: Spontaneous
  Country: FR (occurrence: FR)
  Receive Date: 20191114
  Receipt Date: 20191114
  Transmission Date: 20200122
  Serious: Yes (Other)
  Sender: FDA-Public Use
  Company Number: FR-ALLERGAN-1945714US

PATIENT
  Sex: Female
  Weight: 53 kg

DRUGS (3)
  1. CEFTAZIDIME;AVIBACTAM - BP [Suspect]
     Active Substance: AVIBACTAM SODIUM\CEFTAZIDIME
     Indication: BURKHOLDERIA GLADIOLI INFECTION
     Dosage: 6 G, QD
     Route: 042
     Dates: start: 20190922, end: 20191006
  2. MEROPENEM. [Suspect]
     Active Substance: MEROPENEM
     Indication: BURKHOLDERIA GLADIOLI INFECTION
     Dosage: 6 G, QD
     Route: 042
     Dates: start: 20190922, end: 20191006
  3. BACTRIM [Suspect]
     Active Substance: SULFAMETHOXAZOLE\TRIMETHOPRIM
     Indication: BURKHOLDERIA GLADIOLI INFECTION
     Dosage: 2400 MG, QD
     Route: 048
     Dates: start: 20190922, end: 20191006

REACTIONS (1)
  - Neutropenia [Not Recovered/Not Resolved]

NARRATIVE: CASE EVENT DATE: 20190924
